FAERS Safety Report 17517737 (Version 1)
Quarter: 2020Q1

REPORT INFORMATION
  Report Type: Spontaneous
  Country: US (occurrence: US)
  Receive Date: 20200309
  Receipt Date: 20200309
  Transmission Date: 20200409
  Serious: No
  Sender: FDA-Public Use
  Company Number: None

PATIENT
  Age: 28 Year
  Sex: Male
  Weight: 119.25 kg

DRUGS (4)
  1. HALOPERIDOL 10MG ORAL AT BEDTIME FOR SCHIZOPHRENIA [Concomitant]
     Dates: start: 20191203
  2. OLANZAPINE ODT [Suspect]
     Active Substance: OLANZAPINE
     Indication: SCHIZOPHRENIA
     Route: 048
     Dates: start: 20191203, end: 20200303
  3. CHOLECALCIFEROL 5000 UNITS WEEKLY FOR VITAMIN D DEFICIENCY [Concomitant]
     Dates: start: 20200227
  4. DIPHENHYDRAMINE 25MG ORAL AT BEDTIME FOR EPS [Concomitant]
     Dates: start: 20191203

REACTIONS (4)
  - Glycosylated haemoglobin increased [None]
  - Cardiometabolic syndrome [None]
  - Blood triglycerides increased [None]
  - Hyperglycaemia [None]

NARRATIVE: CASE EVENT DATE: 20200303
